FAERS Safety Report 11471276 (Version 2)
Quarter: 2015Q3

REPORT INFORMATION
  Report Type: Spontaneous
  Country: US (occurrence: US)
  Receive Date: 20150903
  Receipt Date: 20150903
  Transmission Date: 20151125
  Serious: Yes (Other)
  Sender: FDA-Public Use
  Company Number: US-ELI_LILLY_AND_COMPANY-US201110004910

PATIENT
  Sex: Male

DRUGS (14)
  1. CYMBALTA [Suspect]
     Active Substance: DULOXETINE HYDROCHLORIDE
     Indication: PAIN
     Dosage: 60 MG, QD
     Dates: start: 2008
  2. CYMBALTA [Interacting]
     Active Substance: DULOXETINE HYDROCHLORIDE
     Dosage: UNK, UNKNOWN
     Dates: start: 201109
  3. CYMBALTA [Interacting]
     Active Substance: DULOXETINE HYDROCHLORIDE
     Dosage: 30 MG, QD
  4. HYZAAR [Concomitant]
     Active Substance: HYDROCHLOROTHIAZIDE\LOSARTAN POTASSIUM
  5. LIPITOR [Concomitant]
     Active Substance: ATORVASTATIN CALCIUM
     Dosage: 10 MG, UNK
  6. COUMADIN [Concomitant]
     Active Substance: WARFARIN SODIUM
  7. LASIX [Concomitant]
     Active Substance: FUROSEMIDE
     Dosage: 20 MG, QD
  8. GLYBURIDE. [Concomitant]
     Active Substance: GLYBURIDE
  9. METFORMIN [Concomitant]
     Active Substance: METFORMIN HYDROCHLORIDE
     Dosage: 500 MG, UNK
  10. MICRO K [Concomitant]
     Dosage: 10 MEQ, UNK
  11. PREVACID [Concomitant]
     Active Substance: LANSOPRAZOLE
     Dosage: 30 MG, UNK
  12. STALEVO [Concomitant]
     Active Substance: CARBIDOPA\ENTACAPONE\LEVODOPA
     Dosage: 150 MG, TID
  13. TRAMADOL. [Interacting]
     Active Substance: TRAMADOL
  14. RELAFEN [Concomitant]
     Active Substance: NABUMETONE
     Dosage: 600 MG, BID

REACTIONS (12)
  - Hyperreflexia [Not Recovered/Not Resolved]
  - Tremor [Not Recovered/Not Resolved]
  - Hyperhidrosis [Unknown]
  - Parkinson^s disease [Unknown]
  - Serotonin syndrome [Recovered/Resolved]
  - Drug interaction [Not Recovered/Not Resolved]
  - Confusional state [Not Recovered/Not Resolved]
  - Chills [Not Recovered/Not Resolved]
  - Mental status changes [Not Recovered/Not Resolved]
  - Muscle spasms [Not Recovered/Not Resolved]
  - Agitation [Not Recovered/Not Resolved]
  - Coordination abnormal [Not Recovered/Not Resolved]
